FAERS Safety Report 16697508 (Version 1)
Quarter: 2019Q3

REPORT INFORMATION
  Report Type: Spontaneous
  Country: CN (occurrence: CN)
  Receive Date: 20190813
  Receipt Date: 20190813
  Transmission Date: 20191004
  Serious: Yes (Life-Threatening, Other)
  Sender: FDA-Public Use
  Company Number: CN-ASTELLAS-2019US032091

PATIENT
  Age: 82 Year
  Sex: Male

DRUGS (4)
  1. VESICARE [Suspect]
     Active Substance: SOLIFENACIN SUCCINATE
     Indication: MICTURITION URGENCY
  2. VESICARE [Suspect]
     Active Substance: SOLIFENACIN SUCCINATE
     Indication: POLLAKIURIA
     Dosage: UNK UNK, UNKNOWN FREQ.
     Route: 048
  3. BETMIGA [Suspect]
     Active Substance: MIRABEGRON
     Indication: POLLAKIURIA
     Dosage: UNK UNK, UNKNOWN FREQ.
     Route: 048
     Dates: start: 20190731, end: 20190802
  4. BETMIGA [Suspect]
     Active Substance: MIRABEGRON
     Indication: MICTURITION URGENCY

REACTIONS (5)
  - Atrial flutter [Unknown]
  - Off label use [Unknown]
  - Drug ineffective for unapproved indication [Unknown]
  - Arrhythmia [Unknown]
  - Atrial fibrillation [Unknown]

NARRATIVE: CASE EVENT DATE: 20190731
